FAERS Safety Report 5220686-1 (Version None)
Quarter: 2007Q1

REPORT INFORMATION
  Report Type: 
  Country: None (occurrence: None)
  Receive Date: 20070126
  Receipt Date: 20070116
  Transmission Date: 20070707
  Serious: Yes (Other)
  Sender: FDA-Public Use
  Company Number: PHBS2007FI01049

PATIENT
  Age: 31 Year
  Sex: Female

DRUGS (2)
  1. LEPONEX [Suspect]
     Route: 048
  2. PAROXETINE HCL [Concomitant]

REACTIONS (5)
  - C-REACTIVE PROTEIN INCREASED [None]
  - LEUKOCYTOSIS [None]
  - LOBAR PNEUMONIA [None]
  - PERICARDITIS [None]
  - PLEURISY [None]
